FAERS Safety Report 19467999 (Version 1)
Quarter: 2021Q2

REPORT INFORMATION
  Report Type: Spontaneous
  Country: FR (occurrence: FR)
  Receive Date: 20210628
  Receipt Date: 20210628
  Transmission Date: 20210717
  Serious: Yes (Hospitalization)
  Sender: FDA-Public Use
  Company Number: FR-TEVA-2021-FR-1925915

PATIENT
  Age: 81 Year
  Sex: Male

DRUGS (9)
  1. KARDEGIC [Concomitant]
     Active Substance: ASPIRIN DL-LYSINE
     Indication: DYSPEPSIA
  2. WELLVONE [Suspect]
     Active Substance: ATOVAQUONE
     Indication: PROPHYLAXIS
     Dosage: 1DOSAGEFORM
     Route: 048
     Dates: start: 20210331, end: 20210508
  3. CHLORHYDRATE DE VALACICLOVIR [Suspect]
     Active Substance: VALACYCLOVIR HYDROCHLORIDE
     Indication: PROPHYLAXIS
     Dosage: 500MG 2 * / DAY:UNIT DOSE:1000MILLIGRAM
     Route: 048
     Dates: start: 20210331, end: 20210508
  4. NEOFORDEX [Suspect]
     Active Substance: DEXAMETHASONE ACETATE
     Indication: PLASMA CELL MYELOMA
     Dosage: 20MILLIGRAM
     Route: 048
     Dates: start: 20210331, end: 20210508
  5. ESOMEPRAZOLE. [Concomitant]
     Active Substance: ESOMEPRAZOLE MAGNESIUM
     Dosage: UNSPECIFIED DOSE
     Route: 048
     Dates: start: 20210331
  6. BISOPROLOL (FUMARATE ACIDE DE) [Concomitant]
     Active Substance: BISOPROLOL FUMARATE
  7. REVLIMID [Suspect]
     Active Substance: LENALIDOMIDE
     Indication: PLASMA CELL MYELOMA
     Dosage: TAKEN FOR 21 DAYS THEN A 7 DAY BREAK:UNIT DOSE:15MILLIGRAM
     Route: 048
     Dates: start: 20210331, end: 20210508
  8. EZETIMIBE. [Concomitant]
     Active Substance: EZETIMIBE
  9. ATORVASTATINE [Concomitant]
     Active Substance: ATORVASTATIN

REACTIONS (1)
  - Drug reaction with eosinophilia and systemic symptoms [Recovering/Resolving]

NARRATIVE: CASE EVENT DATE: 20210502
